FAERS Safety Report 23585159 (Version 1)
Quarter: 2024Q1

REPORT INFORMATION
  Report Type: Spontaneous
  Country: US (occurrence: US)
  Receive Date: 20240301
  Receipt Date: 20240301
  Transmission Date: 20240410
  Serious: Yes (Hospitalization)
  Sender: FDA-Public Use
  Company Number: US-BRISTOL-MYERS SQUIBB COMPANY-2024-028358

PATIENT
  Age: 57 Year
  Sex: Female

DRUGS (1)
  1. LENALIDOMIDE [Suspect]
     Active Substance: LENALIDOMIDE
     Indication: Plasma cell myeloma refractory
     Dosage: TAKE 1 CAPSULE BY MOUTH EVERY DAY ON DAYS 1-21 THEN OFF ON DAYS 22-28 OF 28- DAY CYCLE
     Route: 048

REACTIONS (6)
  - Product availability issue [Unknown]
  - Pain [Unknown]
  - Fatigue [Unknown]
  - Influenza [Unknown]
  - Intentional dose omission [Unknown]
  - Therapy interrupted [Unknown]
